FAERS Safety Report 4694059-4 (Version None)
Quarter: 2005Q2

REPORT INFORMATION
  Report Type: 
  Country: None (occurrence: None)
  Receive Date: 20050616
  Receipt Date: 20050603
  Transmission Date: 20051028
  Serious: Yes (Other)
  Sender: FDA-Public Use
  Company Number: 2005086083

PATIENT
  Sex: Female
  Weight: 90.7194 kg

DRUGS (3)
  1. CELEBREX [Suspect]
     Indication: SHOULDER PAIN
     Dosage: ORAL
     Route: 048
     Dates: start: 20000101, end: 20010101
  2. BEXTRA [Suspect]
     Indication: SHOULDER PAIN
     Dosage: (DAILY INTERVAL: EVERY DAY), ORAL
     Dates: start: 20021001, end: 20050101
  3. METFORMIN HCL [Concomitant]

REACTIONS (3)
  - DRUG INEFFECTIVE [None]
  - MENISCUS LESION [None]
  - THYROID DISORDER [None]
